FAERS Safety Report 10475789 (Version 2)
Quarter: 2014Q4

REPORT INFORMATION
  Report Type: Spontaneous
  Country: US (occurrence: US)
  Receive Date: 20140925
  Receipt Date: 20141211
  Transmission Date: 20150528
  Serious: No
  Sender: FDA-Public Use
  Company Number: US-GLAXOSMITHKLINE-A1088365A

PATIENT
  Age: 69 Year
  Sex: Male

DRUGS (9)
  1. VITAMIN C [Concomitant]
     Active Substance: ASCORBIC ACID
  2. RYTHMOL [Concomitant]
     Active Substance: PROPAFENONE HYDROCHLORIDE
  3. PROPAFENONE HCL [Suspect]
     Active Substance: PROPAFENONE HYDROCHLORIDE
     Indication: ATRIAL FIBRILLATION
     Dosage: 225 MG, BID
     Route: 065
     Dates: start: 20140825, end: 20140902
  4. METFORMIN [Concomitant]
     Active Substance: METFORMIN HYDROCHLORIDE
  5. OMEGA 3 [Concomitant]
     Active Substance: OMEGA-3 FATTY ACIDS
  6. ELIQUIS [Concomitant]
     Active Substance: APIXABAN
  7. MAGNESIUM SUPPLEMENT [Concomitant]
  8. METOPROLOL [Concomitant]
     Active Substance: METOPROLOL
  9. CALCIUM SUPPLEMENT [Concomitant]
     Active Substance: CALCIUM

REACTIONS (9)
  - Vomiting [Recovering/Resolving]
  - Product substitution issue [Recovering/Resolving]
  - Fatigue [Recovering/Resolving]
  - Apathy [Recovering/Resolving]
  - Asthenia [Recovering/Resolving]
  - Head discomfort [Recovering/Resolving]
  - Drug ineffective [Unknown]
  - Nausea [Recovering/Resolving]
  - Vision blurred [Recovering/Resolving]

NARRATIVE: CASE EVENT DATE: 20140825
